FAERS Safety Report 11087833 (Version 1)
Quarter: 2015Q2

REPORT INFORMATION
  Report Type: Spontaneous
  Country: US (occurrence: US)
  Receive Date: 20150504
  Receipt Date: 20150504
  Transmission Date: 20150821
  Serious: No
  Sender: FDA-Public Use
  Company Number: US-BAXTER-2015BAX021923

PATIENT
  Sex: Female
  Weight: 3 kg

DRUGS (1)
  1. FAMOTIDINE INJECTION (MANUFACTURER UNKNOWN) (FAMOTIDINE) FAMOTIDINE) [Suspect]
     Active Substance: FAMOTIDINE
     Indication: PRODUCT USED FOR UNKNOWN INDICATION
     Route: 042

REACTIONS (2)
  - Incorrect dose administered [Unknown]
  - No adverse event [Recovered/Resolved]
